FAERS Safety Report 6546276-6 (Version None)
Quarter: 2010Q1

REPORT INFORMATION
  Report Type: 
  Country: None (occurrence: None)
  Receive Date: 20100122
  Receipt Date: 20100121
  Transmission Date: 20100710
  Serious: Yes (Disabling, Other)
  Sender: FDA-Public Use
  Company Number: EC-BAYER-201010690LA

PATIENT
  Age: 58 Year
  Sex: Male

DRUGS (1)
  1. AVELOX [Suspect]
     Indication: CHRONIC SINUSITIS
     Dosage: TOTAL DAILY DOSE: 400 MG  UNIT DOSE: 400 MG
     Route: 048

REACTIONS (6)
  - ARTHRALGIA [None]
  - CYSTITIS HAEMORRHAGIC [None]
  - JOINT DISLOCATION [None]
  - LIGAMENT SPRAIN [None]
  - MICTURITION URGENCY [None]
  - PROSTATITIS [None]
